FAERS Safety Report 7951187-5 (Version None)
Quarter: 2011Q4

REPORT INFORMATION
  Report Type: 
  Country: None (occurrence: None)
  Receive Date: 20111201
  Receipt Date: 20111123
  Transmission Date: 20120403
  Serious: Yes (Other)
  Sender: FDA-Public Use
  Company Number: PHEH2011US02197

PATIENT
  Sex: Male

DRUGS (1)
  1. EXTAVIA [Suspect]
     Indication: MULTIPLE SCLEROSIS
     Dosage: 0.25 MG, QOD
     Route: 058
     Dates: start: 20110817

REACTIONS (9)
  - FURUNCLE [None]
  - DECREASED APPETITE [None]
  - BURNING SENSATION [None]
  - HYPOAESTHESIA [None]
  - DYSPNOEA [None]
  - PRURITUS [None]
  - BLISTER [None]
  - OEDEMA PERIPHERAL [None]
  - WEIGHT DECREASED [None]
